FAERS Safety Report 16300676 (Version 7)
Quarter: 2020Q1

REPORT INFORMATION
  Report Type: Report from Study
  Country: CA (occurrence: CA)
  Receive Date: 20190510
  Receipt Date: 20200106
  Transmission Date: 20200409
  Serious: Yes (Other)
  Sender: FDA-Public Use
  Company Number: CA-ROCHE-2192383

PATIENT
  Age: 59 Year
  Sex: Female

DRUGS (7)
  1. ATORVASTATIN [Concomitant]
     Active Substance: ATORVASTATIN
     Route: 065
  2. ATORVASTATIN [Concomitant]
     Active Substance: ATORVASTATIN
     Indication: BLOOD CHOLESTEROL
     Dosage: YES
     Route: 048
     Dates: start: 2017
  3. RISEDRONATE [Concomitant]
     Active Substance: RISEDRONATE SODIUM
     Indication: OSTEOPOROSIS
     Dosage: YES
     Route: 048
     Dates: start: 2013
  4. ATIVAN [Concomitant]
     Active Substance: LORAZEPAM
     Indication: PANIC ATTACK
  5. ATIVAN [Concomitant]
     Active Substance: LORAZEPAM
     Indication: ANXIETY
     Route: 048
  6. ATIVAN [Concomitant]
     Active Substance: LORAZEPAM
     Indication: SLEEP DISORDER
  7. OCREVUS [Suspect]
     Active Substance: OCRELIZUMAB
     Indication: RELAPSING-REMITTING MULTIPLE SCLEROSIS
     Dosage: ON DAY 0 AND DAY 14 AND THEN 600 MG
     Route: 042
     Dates: start: 20180919

REACTIONS (28)
  - Infusion related reaction [Recovered/Resolved]
  - Limb discomfort [Not Recovered/Not Resolved]
  - Headache [Not Recovered/Not Resolved]
  - Infusion related reaction [Recovered/Resolved]
  - Panic attack [Recovered/Resolved]
  - Asthenia [Unknown]
  - Infusion related reaction [Recovered/Resolved]
  - Influenza [Recovered/Resolved]
  - Migraine [Recovered/Resolved]
  - Pyrexia [Recovered/Resolved]
  - Fatigue [Unknown]
  - Pain of skin [Unknown]
  - Decreased appetite [Unknown]
  - Bradyphrenia [Not Recovered/Not Resolved]
  - Bronchitis [Recovered/Resolved]
  - Malaise [Unknown]
  - Facial paralysis [Recovered/Resolved]
  - Stress [Unknown]
  - Blood pressure increased [Unknown]
  - Asthenia [Not Recovered/Not Resolved]
  - Toothache [Not Recovered/Not Resolved]
  - Fall [Unknown]
  - Pain [Recovered/Resolved]
  - Sinus headache [Recovered/Resolved]
  - Musculoskeletal stiffness [Unknown]
  - Diarrhoea [Unknown]
  - Lethargy [Unknown]
  - Nasopharyngitis [Recovered/Resolved]

NARRATIVE: CASE EVENT DATE: 20180919
